FAERS Safety Report 24887188 (Version 1)
Quarter: 2025Q1

REPORT INFORMATION
  Report Type: Report from Study
  Country: US (occurrence: US)
  Receive Date: 20250127
  Receipt Date: 20250127
  Transmission Date: 20250409
  Serious: Yes (Other)
  Sender: STALLERGENES
  Company Number: US-AIMMUNE THERAPEUTICS, INC.-2024AIMT00962

PATIENT
  Age: 12 Year
  Sex: Female

DRUGS (3)
  1. PALFORZIA [Suspect]
     Active Substance: PEANUT
     Indication: Food allergy
     Route: 065
     Dates: start: 20240103, end: 20240103
  2. PALFORZIA [Suspect]
     Active Substance: PEANUT
     Dosage: 200 MG, 1X/DAY
     Dates: start: 20240528
  3. PALFORZIA [Suspect]
     Active Substance: PEANUT
     Route: 065
     Dates: start: 20240528, end: 20240528

REACTIONS (5)
  - Anaphylactic reaction [Unknown]
  - Ocular hyperaemia [Unknown]
  - Eye pruritus [Unknown]
  - Wheezing [Unknown]
  - Vomiting [Unknown]

NARRATIVE: CASE EVENT DATE: 20240612
